FAERS Safety Report 6633895-1 (Version None)
Quarter: 2010Q1

REPORT INFORMATION
  Report Type: 
  Country: None (occurrence: None)
  Receive Date: 20100315
  Receipt Date: 20100309
  Transmission Date: 20100710
  Serious: Yes (Hospitalization)
  Sender: FDA-Public Use
  Company Number: US-ELI_LILLY_AND_COMPANY-US201003003252

PATIENT
  Age: 63 Year
  Sex: Male

DRUGS (3)
  1. HUMALOG [Suspect]
     Indication: TYPE 1 DIABETES MELLITUS
     Dosage: UNK, AS NEEDED
     Dates: start: 20090101
  2. HUMALOG [Suspect]
  3. LEVEMIR [Concomitant]
     Dosage: UNK, EACH EVENING

REACTIONS (5)
  - BLOOD GLUCOSE DECREASED [None]
  - BLOOD GLUCOSE INCREASED [None]
  - DRUG INEFFECTIVE [None]
  - FATIGUE [None]
  - LUNG NEOPLASM MALIGNANT [None]
